FAERS Safety Report 15821263 (Version 3)
Quarter: 2019Q2

REPORT INFORMATION
  Report Type: Spontaneous
  Country: US (occurrence: US)
  Receive Date: 20190114
  Receipt Date: 20190401
  Transmission Date: 20190711
  Serious: No
  Sender: FDA-Public Use
  Company Number: US-BAYER-2019-009830

PATIENT
  Age: 62 Year
  Sex: Male

DRUGS (10)
  1. VICODIN [Concomitant]
     Active Substance: ACETAMINOPHEN\HYDROCODONE BITARTRATE
  2. COREG [Concomitant]
     Active Substance: CARVEDILOL
  3. BETASERON [Suspect]
     Active Substance: INTERFERON BETA-1B
     Indication: MUSCLE SPASMS
     Dosage: 0.25 MG, QOD
     Route: 058
     Dates: start: 201511
  4. ZOLOFT [Concomitant]
     Active Substance: SERTRALINE HYDROCHLORIDE
  5. XANAX [Concomitant]
     Active Substance: ALPRAZOLAM
  6. RANEXA [Concomitant]
     Active Substance: RANOLAZINE
  7. ROBAXIN [Concomitant]
     Active Substance: METHOCARBAMOL
  8. LIPITOR [Concomitant]
     Active Substance: ATORVASTATIN CALCIUM
  9. BETASERON [Suspect]
     Active Substance: INTERFERON BETA-1B
     Indication: MUSCLE SPASMS
     Dosage: UNK
  10. LISINOPRIL. [Concomitant]
     Active Substance: LISINOPRIL

REACTIONS (3)
  - Product dose omission [Recovered/Resolved]
  - Product dose omission [Not Recovered/Not Resolved]
  - Product dose omission [None]

NARRATIVE: CASE EVENT DATE: 201901
